FAERS Safety Report 5796541-5 (Version None)
Quarter: 2008Q3

REPORT INFORMATION
  Report Type: 
  Country: None (occurrence: None)
  Receive Date: 20080701
  Receipt Date: 20080623
  Transmission Date: 20090109
  Serious: Yes (Hospitalization)
  Sender: FDA-Public Use
  Company Number: JP-BRISTOL-MYERS SQUIBB COMPANY-14052336

PATIENT
  Age: 40 Year
  Sex: Female
  Weight: 53 kg

DRUGS (10)
  1. ABATACEPT [Suspect]
     Indication: RHEUMATOID ARTHRITIS
     Dosage: INTERRUPTED ON 27OCT07, 27DEC07-21FEB08 AND RESTARTED 07APR08-ONGOING, 500 MG DIV.
     Route: 041
     Dates: start: 20070608
  2. METHOTREXATE TABS [Concomitant]
     Indication: RHEUMATOID ARTHRITIS
     Dosage: THERAPY DATES: }=12 WEEKS PRIOR TO ENROLLMENT STARTED + STOPPED ON 9MAR08; 22MAR08-CONTINUING.
     Route: 048
  3. SULINDAC [Concomitant]
     Indication: RHEUMATOID ARTHRITIS
     Dosage: DOSE FORM=TAB
     Route: 048
     Dates: start: 20070406, end: 20080104
  4. PREDONINE [Concomitant]
     Indication: RHEUMATOID ARTHRITIS
     Dosage: THERAPY DATES:06APR07-04JAN08,05JAN08-21JAN08,24JAN08-09MAR08.
     Route: 048
     Dates: start: 20070406, end: 20080309
  5. MERCAZOLE [Concomitant]
     Indication: THYROID DISORDER
     Dosage: DOSE FORM=TAB
     Route: 048
     Dates: start: 20070913, end: 20080104
  6. MERCAZOLE [Concomitant]
     Indication: BASEDOW'S DISEASE
     Dosage: DOSE FORM=TAB
     Route: 048
     Dates: start: 20070913, end: 20080104
  7. ISALON [Concomitant]
     Indication: GASTRITIS
     Dosage: DOSE FORM=TAB; THERAPY STARTED PRIOR TO OBTAINING IC.
     Route: 048
     Dates: end: 20080104
  8. CIMETIDINE [Concomitant]
     Indication: GASTRITIS
     Dosage: DOSE FORM=TAB
     Route: 048
     Dates: start: 20070406, end: 20080104
  9. MAGNESIUM OXIDE [Concomitant]
     Indication: CONSTIPATION
     Dosage: 1 DOSAGE FORM=660-990 MG.
     Route: 048
     Dates: start: 20071027, end: 20071210
  10. FOLIAMIN [Concomitant]
     Indication: PROPHYLAXIS
     Dosage: THERAPY STARTED PRIOR TO OBTAINING IC.
     Route: 048
     Dates: end: 20080309

REACTIONS (1)
  - UTERINE LEIOMYOMA [None]
